FAERS Safety Report 12331342 (Version 2)
Quarter: 2016Q3

REPORT INFORMATION
  Report Type: Spontaneous
  Country: US (occurrence: US)
  Receive Date: 20160504
  Receipt Date: 20160719
  Transmission Date: 20161109
  Serious: Yes (Other)
  Sender: FDA-Public Use
  Company Number: US-TEVA-656411USA

PATIENT
  Age: 45 Year
  Sex: Female

DRUGS (1)
  1. ZECUITY [Suspect]
     Active Substance: SUMATRIPTAN SUCCINATE
     Indication: MIGRAINE
     Route: 062
     Dates: start: 20160425, end: 20160425

REACTIONS (8)
  - Application site pain [Recovered/Resolved]
  - Application site dryness [Recovered/Resolved]
  - Application site erythema [Recovered/Resolved]
  - Injection site scar [Recovered/Resolved]
  - Application site warmth [Recovered/Resolved]
  - Sunburn [Recovered/Resolved]
  - Application site paraesthesia [Recovered/Resolved]
  - Product leakage [Unknown]

NARRATIVE: CASE EVENT DATE: 20160425
